FAERS Safety Report 13603989 (Version 6)
Quarter: 2021Q3

REPORT INFORMATION
  Report Type: Spontaneous
  Country: US (occurrence: US)
  Receive Date: 20170602
  Receipt Date: 20210929
  Transmission Date: 20211014
  Serious: Yes (Death, Hospitalization)
  Sender: FDA-Public Use
  Company Number: US-VIFOR (INTERNATIONAL) INC.-VIT-2017-05923

PATIENT
  Age: 86 Year
  Sex: Male

DRUGS (4)
  1. SPIRONOLACTONE. [Concomitant]
     Active Substance: SPIRONOLACTONE
  2. PROPRANOLOL HCL [Concomitant]
     Active Substance: PROPRANOLOL HYDROCHLORIDE
  3. LISINOPRIL. [Concomitant]
     Active Substance: LISINOPRIL
  4. VELTASSA [Suspect]
     Active Substance: PATIROMER
     Indication: HYPERKALAEMIA
     Route: 048
     Dates: start: 20170214

REACTIONS (7)
  - Cerebral haemorrhage [Unknown]
  - Hypotension [Unknown]
  - Death [Fatal]
  - Seizure [Unknown]
  - Fall [Unknown]
  - Cervical vertebral fracture [Unknown]
  - Neck injury [Unknown]

NARRATIVE: CASE EVENT DATE: 2017
